FAERS Safety Report 8465753-4 (Version None)
Quarter: 2012Q2

REPORT INFORMATION
  Report Type: 
  Country: None (occurrence: None)
  Receive Date: 20120626
  Receipt Date: 20110829
  Transmission Date: 20120825
  Serious: No
  Sender: FDA-Public Use
  Company Number: US-MUTUAL PHARMACEUTICAL COMPANY, INC.-MTCD20110015

PATIENT
  Sex: 0

DRUGS (1)
  1. METOCLOPRAMIDE [Suspect]
     Indication: PRODUCT USED FOR UNKNOWN INDICATION
     Route: 048
     Dates: start: 19991001, end: 20100501

REACTIONS (5)
  - TARDIVE DYSKINESIA [None]
  - AKATHISIA [None]
  - EXTRAPYRAMIDAL DISORDER [None]
  - TREMOR [None]
  - RESTLESS LEGS SYNDROME [None]
